FAERS Safety Report 9648609 (Version 1)
Quarter: 2013Q4

REPORT INFORMATION
  Report Type: Spontaneous
  Country: US (occurrence: None)
  Receive Date: 20131025
  Receipt Date: 20131025
  Transmission Date: 20140711
  Serious: Yes (Life-Threatening)
  Sender: FDA-Public Use
  Company Number: None

PATIENT
  Age: 68 Year
  Sex: Male
  Weight: 124.74 kg

DRUGS (10)
  1. PENTASA [Suspect]
     Indication: COLITIS
     Dosage: 2 CAPSULES; FOUR TIMES DAILY
     Route: 048
     Dates: start: 20130923, end: 20130929
  2. DELZICOL [Concomitant]
  3. PRAVASTATIN [Concomitant]
  4. LISINOPRIL [Concomitant]
  5. OMEPRAZOLE [Concomitant]
  6. MULTIVITAMIN [Concomitant]
  7. FISH OIL [Concomitant]
  8. ALLEGRA [Concomitant]
  9. TYLENOL [Concomitant]
  10. BENADRYL [Concomitant]

REACTIONS (3)
  - Throat tightness [None]
  - Swollen tongue [None]
  - Lip swelling [None]
